FAERS Safety Report 12521659 (Version 1)
Quarter: 2016Q3

REPORT INFORMATION
  Report Type: Spontaneous
  Country: US (occurrence: US)
  Receive Date: 20160701
  Receipt Date: 20160701
  Transmission Date: 20161109
  Serious: Yes (Other)
  Sender: FDA-Public Use
  Company Number: US-TEVA-671761USA

PATIENT
  Age: 36 Year
  Sex: Female

DRUGS (2)
  1. ZECUITY [Suspect]
     Active Substance: SUMATRIPTAN SUCCINATE
     Route: 062
     Dates: start: 20160602
  2. ZECUITY [Suspect]
     Active Substance: SUMATRIPTAN SUCCINATE
     Route: 062
     Dates: start: 201605

REACTIONS (6)
  - Application site pruritus [Not Recovered/Not Resolved]
  - Application site burn [Unknown]
  - Application site pain [Unknown]
  - Application site exfoliation [Not Recovered/Not Resolved]
  - Application site erythema [Recovered/Resolved]
  - Application site vesicles [Unknown]

NARRATIVE: CASE EVENT DATE: 201605
